FAERS Safety Report 4311603-7 (Version None)
Quarter: 2004Q1

REPORT INFORMATION
  Report Type: 
  Country: None (occurrence: None)
  Receive Date: 20040303
  Receipt Date: 20040303
  Transmission Date: 20041129
  Serious: Yes (Hospitalization)
  Sender: FDA-Public Use
  Company Number: None

PATIENT
  Age: 44 Year
  Sex: Female

DRUGS (2)
  1. CELEXA [Suspect]
     Indication: MENTAL DISORDER
     Dosage: 40 MG QD ORAL
     Route: 048
     Dates: start: 20031101, end: 20031201
  2. SEROQUEL [Suspect]
     Dosage: 200MG/400 MG QAM/QPM ORAL
     Route: 048

REACTIONS (1)
  - ANGIONEUROTIC OEDEMA [None]
